FAERS Safety Report 10417575 (Version 1)
Quarter: 2014Q3

REPORT INFORMATION
  Report Type: Spontaneous
  Country: US (occurrence: None)
  Receive Date: 20140828
  Receipt Date: 20140828
  Transmission Date: 20150326
  Serious: Yes (Death, Hospitalization)
  Sender: FDA-Public Use
  Company Number: None

PATIENT
  Age: 67 Year
  Sex: Male
  Weight: 95.9 kg

DRUGS (1)
  1. CISPLATIN. [Suspect]
     Active Substance: CISPLATIN

REACTIONS (10)
  - Vomiting [None]
  - Cardio-respiratory arrest [None]
  - Myocardial infarction [None]
  - Lipase increased [None]
  - Unresponsive to stimuli [None]
  - Dehydration [None]
  - Pulmonary embolism [None]
  - Nausea [None]
  - Abdominal pain [None]
  - Pulseless electrical activity [None]

NARRATIVE: CASE EVENT DATE: 20140518
